FAERS Safety Report 4962036-1 (Version None)
Quarter: 2006Q2

REPORT INFORMATION
  Report Type: 
  Country: None (occurrence: None)
  Receive Date: 20060404
  Receipt Date: 20050914
  Transmission Date: 20061013
  Serious: Yes (Hospitalization, Disabling)
  Sender: FDA-Public Use
  Company Number: US-MERCK-0509USA01924

PATIENT
  Age: 59 Year
  Sex: Male
  Weight: 102 kg

DRUGS (6)
  1. VIOXX [Suspect]
     Indication: ARTHRITIS
     Route: 048
     Dates: start: 20010913, end: 20040930
  2. VIOXX [Suspect]
     Route: 048
  3. VIOXX [Suspect]
     Indication: ARTHRALGIA
     Route: 048
     Dates: start: 20010913, end: 20040930
  4. VIOXX [Suspect]
     Route: 048
  5. TRAZODONE HYDROCHLORIDE [Concomitant]
     Indication: INSOMNIA
     Route: 065
  6. TYLENOL (CAPLET) [Concomitant]
     Route: 065

REACTIONS (7)
  - CEREBROVASCULAR ACCIDENT [None]
  - CHEST PAIN [None]
  - DEPRESSION [None]
  - DIABETES MELLITUS [None]
  - ERECTILE DYSFUNCTION [None]
  - INSOMNIA [None]
  - JOINT INJURY [None]
